FAERS Safety Report 22641187 (Version 3)
Quarter: 2024Q4

REPORT INFORMATION
  Report Type: Report from Study
  Country: BR (occurrence: BR)
  Receive Date: 20230626
  Receipt Date: 20241007
  Transmission Date: 20250115
  Serious: Yes (Other)
  Sender: NOVARTIS
  Company Number: BR-002147023-NVSC2023BR109968

PATIENT
  Age: 70 Year
  Sex: Female
  Weight: 91 kg

DRUGS (6)
  1. KISQALI [Suspect]
     Active Substance: RIBOCICLIB
     Indication: Breast cancer
     Dosage: UNK (3)
     Route: 065
     Dates: start: 20230114
  2. KISQALI [Suspect]
     Active Substance: RIBOCICLIB
     Dosage: 3 DOSAGE FORM, QD
     Route: 048
     Dates: start: 20230506, end: 20230512
  3. KISQALI [Suspect]
     Active Substance: RIBOCICLIB
     Dosage: 2 DOSAGE FORM
     Route: 065
  4. KISQALI [Suspect]
     Active Substance: RIBOCICLIB
     Dosage: 1 DOSAGE FORM
     Route: 065
  5. KISQALI [Suspect]
     Active Substance: RIBOCICLIB
     Dosage: UNK
     Route: 065
  6. KISQALI [Suspect]
     Active Substance: RIBOCICLIB
     Dosage: UNK
     Route: 065

REACTIONS (13)
  - Blood pressure fluctuation [Recovered/Resolved]
  - Hypertension [Recovered/Resolved]
  - Cardiomegaly [Recovered/Resolved]
  - Pneumonia [Recovered/Resolved]
  - Cough [Recovered/Resolved]
  - Metastases to spine [Recovered/Resolved]
  - Metastases to neck [Recovered/Resolved]
  - Blood pressure abnormal [Recovered/Resolved]
  - Viral infection [Recovered/Resolved]
  - Dysstasia [Recovered/Resolved]
  - Cold sweat [Recovered/Resolved]
  - Asthenia [Recovered/Resolved]
  - Hypertension [Recovered/Resolved]

NARRATIVE: CASE EVENT DATE: 20230311
